FAERS Safety Report 8562784 (Version 4)
Quarter: 2013Q2

REPORT INFORMATION
  Report Type: Spontaneous
  Country: FR (occurrence: FR)
  Receive Date: 20120515
  Receipt Date: 20130612
  Transmission Date: 20140414
  Serious: Yes (Death)
  Sender: FDA-Public Use
  Company Number: FR-UCBSA-057116

PATIENT
  Age: 75 Year
  Sex: Male

DRUGS (4)
  1. VIMPAT [Suspect]
     Indication: EPILEPSY
     Dosage: 15 MG/ML
     Route: 048
  2. KEPPRA [Suspect]
     Indication: EPILEPSY
     Route: 048
  3. GARDENAL [Concomitant]
     Indication: EPILEPSY
     Route: 048
  4. DEPAKINE CHRONO [Concomitant]
     Indication: EPILEPSY
     Route: 048

REACTIONS (2)
  - Cerebral haemorrhage [Fatal]
  - Superinfection [Fatal]
